FAERS Safety Report 8530120-1 (Version None)
Quarter: 2012Q3

REPORT INFORMATION
  Report Type: 
  Country: None (occurrence: None)
  Receive Date: 20120711
  Receipt Date: 20120626
  Transmission Date: 20120928
  Serious: Yes (Hospitalization, Other)
  Sender: FDA-Public Use
  Company Number: CIP11000505

PATIENT
  Age: 77 Year
  Sex: Female

DRUGS (35)
  1. NIACIN (NICTONIC ACID) [Concomitant]
  2. TRAZODONE HYDROCHLORIDE [Concomitant]
  3. DOXAZOSIN MESYLATE [Concomitant]
  4. CIPROFLOXACIN [Concomitant]
  5. FORTEO [Concomitant]
  6. FEXOFENADINE [Concomitant]
  7. DETROL LA [Concomitant]
  8. ALREX [Concomitant]
  9. LEVOXYL [Concomitant]
  10. POTASSIUM CHLORIDE [Concomitant]
  11. PLENDIL [Concomitant]
  12. ZYRTEC [Concomitant]
  13. MULTIVITAMIN (ASCORBIC ACID, CALCIUM PANTOTHENATE, ERGOCALCIFEROL, NIC [Concomitant]
  14. ACTONEL [Suspect]
     Indication: OSTEOPOROSIS
     Dosage: 35 MG ONCE WEEKLY, ORAL; 35 MG ONCE WEEKLY (4 DOSES), ORAL
     Route: 048
     Dates: start: 20070301, end: 20090301
  15. ACTONEL [Suspect]
     Indication: OSTEOPOROSIS
     Dosage: 35 MG ONCE WEEKLY, ORAL; 35 MG ONCE WEEKLY (4 DOSES), ORAL
     Route: 048
     Dates: start: 20100304, end: 20100301
  16. ACTONEL WITH CALCIUM (COPACKAGED) [Suspect]
     Dosage: 35 MG/500 MG, ORAL; 35/1250 MG, ORAL
     Route: 048
     Dates: start: 20070111, end: 20081015
  17. ACTONEL WITH CALCIUM (COPACKAGED) [Suspect]
     Dosage: 35 MG/500 MG, ORAL; 35/1250 MG, ORAL
     Route: 048
     Dates: start: 20090220, end: 20100413
  18. ZANTAC [Concomitant]
  19. SIMVASTATIN [Concomitant]
  20. MIRTAZAPINE [Concomitant]
  21. MACRODANTIN [Concomitant]
  22. NYSTATIN [Concomitant]
  23. SULFAMETHOXAZOLE AND TRIMETHOPRIM [Concomitant]
  24. FISH OIL [Concomitant]
  25. ASPIRIN [Concomitant]
  26. PRILOSEC [Concomitant]
  27. TRIAMTERENE AND HYDROCHLOROTHIAZIDE (HYDROCHLOROTHIAZIDE, TRIAMTERENE) [Concomitant]
  28. BISOPROLOL FUMARATE [Concomitant]
  29. FOSAMAX [Suspect]
     Dosage: 70 MG ONCE WEEKLY, ORAL
     Route: 048
     Dates: start: 20011011, end: 20100101
  30. FOSAMAX [Suspect]
     Dosage: 70 MG ONCE WEEKLY, ORAL
     Route: 048
     Dates: start: 20090319, end: 20100101
  31. MELOXICAM [Concomitant]
  32. CADUET [Concomitant]
  33. CALCIUM + VIT D (CALCIUM, COLECALCIFEROL) [Concomitant]
  34. ACETAMINOPHEN [Concomitant]
  35. VITAMINS NOS [Concomitant]

REACTIONS (15)
  - GAIT DISTURBANCE [None]
  - ANAEMIA POSTOPERATIVE [None]
  - TENDERNESS [None]
  - BONE DISORDER [None]
  - PUBIS FRACTURE [None]
  - STRESS FRACTURE [None]
  - FEMUR FRACTURE [None]
  - ARTHRALGIA [None]
  - BURSITIS [None]
  - FRACTURE DISPLACEMENT [None]
  - PAIN [None]
  - GROIN PAIN [None]
  - PAIN IN EXTREMITY [None]
  - PATHOLOGICAL FRACTURE [None]
  - MUSCLE ATROPHY [None]
